FAERS Safety Report 4753684-2 (Version None)
Quarter: 2005Q3

REPORT INFORMATION
  Report Type: 
  Country: None (occurrence: None)
  Receive Date: 20050824
  Receipt Date: 20050809
  Transmission Date: 20060218
  Serious: Yes (Death, Hospitalization)
  Sender: FDA-Public Use
  Company Number: NL-2005-016209

PATIENT
  Age: 81 Year
  Sex: Male

DRUGS (10)
  1. FLUDARABINE PHOSPHATE [Suspect]
     Indication: CHRONIC LYMPHOCYTIC LEUKAEMIA
     Dosage: 26 MG/M2, DAYS 1-3Q28D, INTRAVENOUS
     Route: 042
     Dates: start: 20041214
  2. CYCLOPHOSPHAMIDE [Suspect]
     Indication: CHRONIC LYMPHOCYTIC LEUKAEMIA
     Dosage: 250 MG/M2, DAYS 1-3Q28D, INTRAVENOUS
     Route: 042
     Dates: start: 20041214
  3. VENTOLIN [Concomitant]
  4. BECOTIDE [Concomitant]
  5. ARANESP [Concomitant]
  6. DYAZIDE [Concomitant]
  7. CALCIUM (CALCIUM) [Concomitant]
  8. FOSAMAX [Concomitant]
  9. VITAMIN B-12 [Concomitant]
  10. FOLIUMZUNE [Concomitant]

REACTIONS (12)
  - ANAEMIA [None]
  - BLOOD ALBUMIN DECREASED [None]
  - DECREASED APPETITE [None]
  - DEHYDRATION [None]
  - DIARRHOEA [None]
  - DYSPEPSIA [None]
  - LEUKOCYTOSIS [None]
  - MALAISE [None]
  - NAUSEA [None]
  - PNEUMONIA [None]
  - PYREXIA [None]
  - WEIGHT DECREASED [None]
